FAERS Safety Report 19296603 (Version 1)
Quarter: 2021Q2

REPORT INFORMATION
  Report Type: Spontaneous
  Country: DE (occurrence: DE)
  Receive Date: 20210524
  Receipt Date: 20210524
  Transmission Date: 20210717
  Serious: Yes (Hospitalization, Other)
  Sender: FDA-Public Use
  Company Number: NVSC2021DE108808

PATIENT
  Age: 79 Year
  Sex: Female

DRUGS (9)
  1. RAMIPRIL. [Concomitant]
     Active Substance: RAMIPRIL
     Indication: HYPERTENSION
     Dosage: 10 MG, QD (5 MG, 2X/DAY:BID)
     Route: 048
     Dates: start: 2015
  2. FUROSEMID [Concomitant]
     Active Substance: FUROSEMIDE
     Indication: OEDEMA
     Dosage: 25 MG, QD (1X/DAY:QD)
     Route: 048
     Dates: start: 201401
  3. RIVAROXABAN [Concomitant]
     Active Substance: RIVAROXABAN
     Indication: ANTICOAGULANT THERAPY
     Dosage: 20 MG, QD (1X/DAY:QD)
     Route: 048
     Dates: start: 201401
  4. CALCIUM [Suspect]
     Active Substance: CALCIUM
     Indication: BONE DENSITY ABNORMAL
     Dosage: 1 DF, QD 1X/DAY:QD (1 OTHER APPLICATION)
     Route: 048
     Dates: start: 2014
  5. PANTOPRAZOL [Concomitant]
     Active Substance: PANTOPRAZOLE SODIUM
     Indication: GASTRIC ULCER
     Dosage: 40 MG, QD (1X/DAY:QD)
     Route: 048
     Dates: start: 201401
  6. LERCANIDIPINE [Concomitant]
     Active Substance: LERCANIDIPINE
     Indication: HYPERTENSION
     Dosage: 20 MG, QD (2X/DAY:BID)
     Route: 048
     Dates: start: 2015
  7. BISOPROLOL [Concomitant]
     Active Substance: BISOPROLOL
     Indication: HYPERTENSION
     Dosage: 5 MG, QD (1X/DAY:QD)
     Route: 048
     Dates: start: 20140601
  8. VITAMIN D3 [Concomitant]
     Active Substance: CHOLECALCIFEROL
     Indication: BONE DENSITY ABNORMAL
     Dosage: 1 DF, QD (1X/DAY:QD (1 OTHER APPLICATION))
     Route: 048
     Dates: start: 2014
  9. ALENDRONAT [Concomitant]
     Active Substance: ALENDRONATE SODIUM
     Indication: BONE DENSITY ABNORMAL
     Dosage: 70 MG, QW (1X/WEEK)
     Route: 048
     Dates: start: 201301

REACTIONS (1)
  - Adrenocortical insufficiency acute [Recovered/Resolved]

NARRATIVE: CASE EVENT DATE: 20151101
